FAERS Safety Report 11059797 (Version 1)
Quarter: 2015Q2

REPORT INFORMATION
  Report Type: Spontaneous
  Country: US (occurrence: None)
  Receive Date: 20150422
  Receipt Date: 20150422
  Transmission Date: 20150821
  Serious: Yes (Death)
  Sender: FDA-Public Use
  Company Number: 2833276

PATIENT
  Age: 32 Year

DRUGS (14)
  1. METHOTREXATE [Suspect]
     Active Substance: METHOTREXATE
     Indication: PROPHYLAXIS
     Dosage: 66 MG MILLIGRAM(S), TOTAL
     Route: 037
     Dates: start: 20130516, end: 20131213
  2. METHOTREXATE [Suspect]
     Active Substance: METHOTREXATE
     Indication: NERVOUS SYSTEM DISORDER
     Dosage: 66 MG MILLIGRAM(S), TOTAL
     Route: 037
     Dates: start: 20130516, end: 20131213
  3. METHOTREXATE [Concomitant]
     Active Substance: METHOTREXATE
  4. CYTARABINE. [Concomitant]
     Active Substance: CYTARABINE
  5. MONOCLONAL ANTIBODIES [Concomitant]
     Active Substance: UNSPECIFIED INGREDIENT
  6. CYTARABINE. [Suspect]
     Active Substance: CYTARABINE
     Indication: NERVOUS SYSTEM DISORDER
     Dosage: 1500 MG MILLIGRAM(S), TOTAL
     Route: 037
     Dates: start: 20130516, end: 20131213
  7. RITUXIMAB [Concomitant]
     Active Substance: RITUXIMAB
  8. VINCRISTINE [Concomitant]
     Active Substance: VINCRISTINE
  9. DEXAMETHASONE. [Concomitant]
     Active Substance: DEXAMETHASONE
  10. EVEROLIMUS [Concomitant]
     Active Substance: EVEROLIMUS
  11. IDARUBICIN [Concomitant]
     Active Substance: IDARUBICIN
  12. PEG-L-ASPARAGINASE [Concomitant]
     Active Substance: PEGASPARGASE
  13. CYTARABINE. [Suspect]
     Active Substance: CYTARABINE
     Indication: PROPHYLAXIS
     Dosage: 1500 MG MILLIGRAM(S), TOTAL
     Route: 037
     Dates: start: 20130516, end: 20131213
  14. CLOFARABINE [Concomitant]
     Active Substance: CLOFARABINE

REACTIONS (2)
  - Myelopathy [None]
  - No therapeutic response [None]
